FAERS Safety Report 19980672 (Version 3)
Quarter: 2021Q4

REPORT INFORMATION
  Report Type: Report from Study
  Country: US (occurrence: US)
  Receive Date: 20211021
  Receipt Date: 20211217
  Transmission Date: 20220303
  Serious: Yes (Other)
  Sender: FDA-Public Use
  Company Number: US-BIOVITRUM-2021US4488

PATIENT
  Sex: Female

DRUGS (26)
  1. KINERET [Suspect]
     Active Substance: ANAKINRA
     Indication: Product used for unknown indication
     Route: 058
     Dates: start: 20210505
  2. POTASSIUM [Concomitant]
     Active Substance: POTASSIUM
  3. AMITRIPTYLINE [Concomitant]
     Active Substance: AMITRIPTYLINE
  4. LOSARTAN [Concomitant]
     Active Substance: LOSARTAN
  5. CYANOCOBALAMIN\DEXPANTHENOL\NIACINAMIDE\PYRIDOXINE HYDROCHLORIDE\RIBOF [Concomitant]
     Active Substance: CYANOCOBALAMIN\DEXPANTHENOL\NIACINAMIDE\PYRIDOXINE HYDROCHLORIDE\RIBOFLAVIN 5^-PHOSPHATE SODIUM\THIA
  6. FUROSEMIDE [Concomitant]
     Active Substance: FUROSEMIDE
  7. ASPIRIN [Concomitant]
     Active Substance: ASPIRIN
  8. PREDNISONE [Concomitant]
     Active Substance: PREDNISONE
  9. ALPRAZOLAM [Concomitant]
     Active Substance: ALPRAZOLAM
  10. OXYCODONE [Concomitant]
     Active Substance: OXYCODONE
  11. chelated Zinc [Concomitant]
  12. RANITIDINE [Concomitant]
     Active Substance: RANITIDINE
  13. CYCLOBENZAPRINE [Concomitant]
     Active Substance: CYCLOBENZAPRINE
  14. VITAMIN C [Concomitant]
     Active Substance: ASCORBIC ACID
  15. TOPROL XL [Concomitant]
     Active Substance: METOPROLOL SUCCINATE
  16. MAGNESIUM [Concomitant]
     Active Substance: MAGNESIUM
  17. SYNTHROID [Concomitant]
     Active Substance: LEVOTHYROXINE SODIUM
  18. TRAZODONE [Concomitant]
     Active Substance: TRAZODONE HYDROCHLORIDE
  19. VALACYCLOVIR [Concomitant]
     Active Substance: VALACYCLOVIR HYDROCHLORIDE
  20. ONDANSETRON [Concomitant]
     Active Substance: ONDANSETRON
  21. VITAMINS [Concomitant]
     Active Substance: VITAMINS
  22. LORATADINE [Concomitant]
     Active Substance: LORATADINE
  23. ACTHAR [Suspect]
     Active Substance: CORTICOTROPIN
     Indication: Product used for unknown indication
  24. CREON [Concomitant]
     Active Substance: PANCRELIPASE AMYLASE\PANCRELIPASE LIPASE\PANCRELIPASE PROTEASE
  25. SUMATRIPTAN [Concomitant]
     Active Substance: SUMATRIPTAN
  26. METHOTREXATE [Concomitant]
     Active Substance: METHOTREXATE

REACTIONS (19)
  - Peripheral artery stenosis [Unknown]
  - Rheumatoid arthritis [Unknown]
  - Raynaud^s phenomenon [Unknown]
  - Condition aggravated [Unknown]
  - Foot deformity [Unknown]
  - Gait disturbance [Unknown]
  - Tachycardia [Unknown]
  - Adverse drug reaction [Unknown]
  - Malaise [Recovering/Resolving]
  - Anxiety [Recovering/Resolving]
  - Injection site pain [Unknown]
  - Injection site rash [Unknown]
  - Injection site swelling [Recovered/Resolved]
  - Injection site erythema [Unknown]
  - Injection site urticaria [Unknown]
  - Injection site pruritus [Unknown]
  - Injection site discolouration [Unknown]
  - Injection site vesicles [Unknown]
  - Injection site bruising [Unknown]
